FAERS Safety Report 6430471-0 (Version None)
Quarter: 2009Q4

REPORT INFORMATION
  Report Type: 
  Country: None (occurrence: None)
  Receive Date: 20091106
  Receipt Date: 20091030
  Transmission Date: 20100525
  Serious: Yes (Other)
  Sender: FDA-Public Use
  Company Number: HU-ELI_LILLY_AND_COMPANY-HU200910007947

PATIENT
  Age: 82 Year
  Sex: Male

DRUGS (16)
  1. HUMULIN R [Suspect]
     Dosage: 16 IU, EACH MORNING
     Route: 058
     Dates: start: 20040101
  2. HUMULIN R [Suspect]
     Dosage: 14 IU, OTHER (AT NOON)
     Route: 058
     Dates: start: 20040101
  3. HUMULIN R [Suspect]
     Dosage: 12 IU, EACH EVENING
     Route: 058
     Dates: start: 20040101
  4. HUMULIN N [Suspect]
     Dosage: 10 IU, EACH EVENING
     Route: 058
     Dates: start: 20040101
  5. MILURIT [Concomitant]
     Dosage: UNK, UNKNOWN
     Route: 065
  6. ATORVA [Concomitant]
     Dosage: UNK, UNKNOWN
     Route: 065
  7. NOOTROPIL [Concomitant]
     Dosage: UNK, UNKNOWN
     Route: 065
  8. METOPROLOL HEXAL [Concomitant]
     Dosage: UNK, UNKNOWN
     Route: 065
  9. QUAMATEL [Concomitant]
     Dosage: UNK, UNKNOWN
     Route: 065
  10. CALCIUM CARBONATE [Concomitant]
     Dosage: UNK, UNKNOWN
     Route: 065
  11. CHINOTAL [Concomitant]
     Dosage: UNK, UNKNOWN
     Route: 065
  12. CORVATON [Concomitant]
     Dosage: UNK, UNKNOWN
     Route: 065
  13. FURON [Concomitant]
     Dosage: UNK, UNKNOWN
     Route: 065
  14. SYNCUMAR [Concomitant]
     Dosage: UNK, UNKNOWN
     Route: 065
  15. RUTASCORBIN [Concomitant]
     Dosage: UNK, UNKNOWN
     Route: 065
  16. HUMA-FOLACID [Concomitant]
     Dosage: UNK, UNKNOWN
     Route: 065

REACTIONS (2)
  - EYE DISORDER [None]
  - RENAL DISORDER [None]
